FAERS Safety Report 4698382-9 (Version None)
Quarter: 2005Q2

REPORT INFORMATION
  Report Type: 
  Country: None (occurrence: None)
  Receive Date: 20050623
  Receipt Date: 20050616
  Transmission Date: 20051028
  Serious: Yes (Hospitalization)
  Sender: FDA-Public Use
  Company Number: BR-ROCHE-408114

PATIENT
  Age: 15 Year
  Sex: Male
  Weight: 40 kg

DRUGS (3)
  1. CELLCEPT [Suspect]
     Route: 048
     Dates: start: 20040815
  2. CELLCEPT [Suspect]
     Route: 048
  3. PROGRAF [Concomitant]
     Dates: start: 20040815

REACTIONS (3)
  - CYTOMEGALOVIRUS INFECTION [None]
  - LUNG DISORDER [None]
  - PARVOVIRUS INFECTION [None]
